FAERS Safety Report 4333333-8 (Version None)
Quarter: 2004Q2

REPORT INFORMATION
  Report Type: 
  Country: None (occurrence: None)
  Receive Date: 20040406
  Receipt Date: 20021220
  Transmission Date: 20050107
  Serious: No
  Sender: FDA-Public Use
  Company Number: GB-MERCK-0212GBR00178M

PATIENT
  Age: 30 Year
  Sex: Female

DRUGS (1)
  1. PROPECIA [Suspect]
     Indication: MALE PATTERN BALDNESS
     Route: 048

REACTIONS (3)
  - DRUG EXPOSURE DURING PREGNANCY [None]
  - INGUINAL HERNIA [None]
  - TRANSMISSION OF DRUG VIA SEMEN [None]
